FAERS Safety Report 8806419 (Version 1)
Quarter: 2012Q4

REPORT INFORMATION
  Report Type: Spontaneous
  Country: US (occurrence: None)
  Receive Date: 20120918
  Receipt Date: 20120918
  Transmission Date: 20130627
  Serious: No
  Sender: FDA-Public Use
  Company Number: None

PATIENT

DRUGS (2)
  1. DOBUTAMINE [Suspect]
     Dosage: Injectable 1000 mcg/mL IV bag 250 mL
  2. DOBUTAMINE [Suspect]
     Dosage: Injectable 2000 mcg/mL IV bag 250 mL

REACTIONS (3)
  - Medication error [None]
  - Drug dispensing error [None]
  - Circumstance or information capable of leading to medication error [None]
